FAERS Safety Report 11906275 (Version 1)
Quarter: 2016Q1

REPORT INFORMATION
  Report Type: Spontaneous
  Country: US (occurrence: None)
  Receive Date: 20160108
  Receipt Date: 20160108
  Transmission Date: 20160526
  Serious: No
  Sender: FDA-Public Use
  Company Number: None

PATIENT
  Age: 56 Year
  Sex: Male

DRUGS (2)
  1. STIVARGA [Suspect]
     Active Substance: REGORAFENIB
     Indication: COLON CANCER
     Dosage: DAILY FOR 3 WEEK ON THEN 1 WEEK
     Route: 048
     Dates: start: 20150729, end: 20150914
  2. STIVARGA [Suspect]
     Active Substance: REGORAFENIB
     Indication: COLON CANCER
     Dosage: DAILY FOR 1 WEEK ON THEN 7 DAYS
     Route: 048
     Dates: start: 20150914

REACTIONS (1)
  - Muscle spasms [None]
